FAERS Safety Report 10515716 (Version 3)
Quarter: 2017Q2

REPORT INFORMATION
  Report Type: Report from Study
  Country: US (occurrence: US)
  Receive Date: 20141014
  Receipt Date: 20170516
  Transmission Date: 20170829
  Serious: Yes (Hospitalization, Other)
  Sender: FDA-Public Use
  Company Number: US-AMGEN-USASP2014078379

PATIENT
  Age: 64 Year
  Sex: Male

DRUGS (1)
  1. ENBREL [Suspect]
     Active Substance: ETANERCEPT
     Indication: RHEUMATOID ARTHRITIS
     Dosage: 50 MG, QWK
     Route: 065
     Dates: start: 20120831

REACTIONS (16)
  - Gait disturbance [Unknown]
  - Peripheral swelling [Unknown]
  - Post procedural haemorrhage [Recovered/Resolved]
  - Arthropathy [Unknown]
  - Weight increased [Unknown]
  - Insomnia [Unknown]
  - Musculoskeletal disorder [Unknown]
  - Confusional state [Unknown]
  - Arthralgia [Recovered/Resolved]
  - Memory impairment [Unknown]
  - Mobility decreased [Unknown]
  - Joint range of motion decreased [Unknown]
  - Back pain [Unknown]
  - Injection site pain [Unknown]
  - Chronic kidney disease [Unknown]
  - Incision site pain [Unknown]

NARRATIVE: CASE EVENT DATE: 201407
